FAERS Safety Report 8845771 (Version 1)
Quarter: 2012Q4

REPORT INFORMATION
  Report Type: 
  Country: US (occurrence: US)
  Receive Date: 20121017
  Receipt Date: 20121017
  Transmission Date: 20130627
  Serious: No
  Sender: FDA-Public Use
  Company Number: US-ASTRAZENECA-2012SE77763

PATIENT
  Age: 39 Year
  Sex: Female
  Weight: 95.3 kg

DRUGS (15)
  1. SEROQUEL [Suspect]
     Indication: BIPOLAR DISORDER
     Route: 048
     Dates: start: 201209, end: 201209
  2. SEROQUEL [Suspect]
     Indication: BIPOLAR DISORDER
     Route: 048
     Dates: start: 201209
  3. DULERA [Concomitant]
     Indication: CHRONIC OBSTRUCTIVE PULMONARY DISEASE
  4. SPIRIVA [Concomitant]
     Indication: CHRONIC OBSTRUCTIVE PULMONARY DISEASE
  5. KLONOPIN [Concomitant]
     Indication: PANIC DISORDER
  6. LAMICTAL [Concomitant]
     Indication: AFFECTIVE DISORDER
  7. NEURONTIN [Concomitant]
     Indication: NEUROPATHY PERIPHERAL
  8. SYNTHROID [Concomitant]
     Indication: THYROID DISORDER
  9. RESTORIL [Concomitant]
     Indication: BIPOLAR DISORDER
  10. ABILIFY [Concomitant]
     Indication: BIPOLAR DISORDER
  11. FENOFIBRATE [Concomitant]
     Indication: BLOOD CHOLESTEROL ABNORMAL
  12. LIPITOR [Concomitant]
     Indication: BLOOD CHOLESTEROL ABNORMAL
  13. FISH OIL [Concomitant]
     Indication: BLOOD CHOLESTEROL ABNORMAL
  14. AMARYL [Concomitant]
     Indication: DIABETES MELLITUS
  15. VICTOSA [Concomitant]
     Indication: DIABETES MELLITUS

REACTIONS (2)
  - Impaired driving ability [Unknown]
  - Somnolence [Unknown]
